FAERS Safety Report 8941754 (Version 2)
Quarter: 2013Q1

REPORT INFORMATION
  Report Type: Spontaneous
  Country: US (occurrence: US)
  Receive Date: 20121203
  Receipt Date: 20130205
  Transmission Date: 20140127
  Serious: Yes (Death, Other)
  Sender: FDA-Public Use
  Company Number: US-INCYTE CORPORATION-2012IN002441

PATIENT
  Sex: Male
  Weight: 61 kg

DRUGS (3)
  1. JAKAFI [Suspect]
     Indication: MYELODYSPLASTIC SYNDROME
     Dosage: 10 MG, BID
     Route: 048
     Dates: start: 20120518, end: 20120825
  2. JAKAFI [Suspect]
     Indication: MYELODYSPLASTIC SYNDROME
  3. JAKAFI [Suspect]
     Indication: MYELOPROLIFERATIVE DISORDER

REACTIONS (2)
  - Disease progression [Fatal]
  - Splenomegaly [Unknown]
